FAERS Safety Report 15285750 (Version 1)
Quarter: 2018Q3

REPORT INFORMATION
  Report Type: Spontaneous
  Country: US (occurrence: US)
  Receive Date: 20180816
  Receipt Date: 20180816
  Transmission Date: 20181010
  Serious: No
  Sender: FDA-Public Use
  Company Number: US-PERRIGO-17US030377

PATIENT

DRUGS (2)
  1. NICOTINE POLACRILEX [Suspect]
     Active Substance: NICOTINE
     Indication: SMOKING CESSATION THERAPY
     Dosage: 2 MG, PRN
     Route: 002
     Dates: start: 2012, end: 2016
  2. NICOTINE POLACRILEX [Suspect]
     Active Substance: NICOTINE
     Dosage: 1/2 LOZENGE, PRN
     Route: 002
     Dates: start: 2016, end: 2017

REACTIONS (3)
  - Wrong technique in product usage process [Recovered/Resolved]
  - Cough [Recovered/Resolved]
  - Nicotine dependence [Recovered/Resolved]

NARRATIVE: CASE EVENT DATE: 2016
